FAERS Safety Report 20877700 (Version 1)
Quarter: 2022Q2

REPORT INFORMATION
  Report Type: Spontaneous
  Country: CO (occurrence: CO)
  Receive Date: 20220526
  Receipt Date: 20220526
  Transmission Date: 20220720
  Serious: Yes (Hospitalization)
  Sender: FDA-Public Use
  Company Number: CO-KYOWAKIRIN-2022BKK007493

PATIENT

DRUGS (13)
  1. CRYSVITA [Suspect]
     Active Substance: BUROSUMAB-TWZA
     Indication: Hereditary hypophosphataemic rickets
     Dosage: 10 MG, 1 IN 14D
     Route: 058
     Dates: start: 20201114, end: 20201128
  2. CRYSVITA [Suspect]
     Active Substance: BUROSUMAB-TWZA
     Dosage: 10 MG, 1 IN 14D
     Route: 058
     Dates: start: 20210102, end: 20210116
  3. CRYSVITA [Suspect]
     Active Substance: BUROSUMAB-TWZA
     Dosage: 10 MG, 1 IN 14D
     Route: 058
     Dates: start: 20210213, end: 20210329
  4. CRYSVITA [Suspect]
     Active Substance: BUROSUMAB-TWZA
     Dosage: 10 MG, 1 IN 14D
     Route: 058
     Dates: start: 20210420, end: 20210602
  5. CRYSVITA [Suspect]
     Active Substance: BUROSUMAB-TWZA
     Dosage: 10 MG, 1 IN 14D
     Route: 058
     Dates: start: 20210623, end: 20210707
  6. CRYSVITA [Suspect]
     Active Substance: BUROSUMAB-TWZA
     Dosage: 10 MG,1 IN 14D
     Route: 058
     Dates: start: 20210727, end: 20210824
  7. CRYSVITA [Suspect]
     Active Substance: BUROSUMAB-TWZA
     Dosage: 10 MG, 1 IN 14D
     Route: 058
     Dates: start: 20211023, end: 20211023
  8. CRYSVITA [Suspect]
     Active Substance: BUROSUMAB-TWZA
     Dosage: 10 MG, 1 IN 14D
     Route: 058
     Dates: start: 20211109, end: 20220118
  9. CRYSVITA [Suspect]
     Active Substance: BUROSUMAB-TWZA
     Dosage: 10 MG, 1 IN 14D
     Route: 058
     Dates: start: 20220205, end: 20220205
  10. CRYSVITA [Suspect]
     Active Substance: BUROSUMAB-TWZA
     Dosage: 10 MG,1 IN 14D
     Route: 058
     Dates: start: 20220226, end: 20220226
  11. CRYSVITA [Suspect]
     Active Substance: BUROSUMAB-TWZA
     Dosage: 10 MG, 1 IN 14D
     Route: 058
     Dates: start: 20220412
  12. CRYSVITA [Suspect]
     Active Substance: BUROSUMAB-TWZA
     Dosage: 10 MG, 1 IN 14D
     Route: 058
     Dates: start: 20220427
  13. CRYSVITA [Suspect]
     Active Substance: BUROSUMAB-TWZA
     Dosage: 20 MG, 1 IN 14D
     Route: 058
     Dates: start: 20201113

REACTIONS (1)
  - Respiratory tract inflammation [Recovering/Resolving]

NARRATIVE: CASE EVENT DATE: 20220510
